FAERS Safety Report 8379315-0 (Version None)
Quarter: 2012Q2

REPORT INFORMATION
  Report Type: 
  Country: None (occurrence: None)
  Receive Date: 20120523
  Receipt Date: 20120516
  Transmission Date: 20120825
  Serious: Yes (Hospitalization, Other)
  Sender: FDA-Public Use
  Company Number: PHBS2004JP13855

PATIENT
  Sex: Female
  Weight: 48 kg

DRUGS (6)
  1. GLEEVEC [Suspect]
     Dosage: 600 MG, UNK
     Dates: start: 20050501
  2. GLEEVEC [Suspect]
     Dosage: 100 MG, DAILY
     Route: 048
     Dates: start: 20041021
  3. GLEEVEC [Suspect]
     Dosage: 400 MG, PER DAY
  4. GLEEVEC [Suspect]
     Indication: CHRONIC MYELOID LEUKAEMIA
     Dosage: 400 MG, DAILY
     Route: 048
     Dates: start: 20040930, end: 20041010
  5. HYDREA [Suspect]
     Indication: CHRONIC MYELOID LEUKAEMIA
     Dosage: 1 G, QD
     Route: 048
     Dates: start: 20040909, end: 20040929
  6. GLEEVEC [Suspect]
     Dosage: 100 MG, PER DAY

REACTIONS (11)
  - INTERSTITIAL LUNG DISEASE [None]
  - COUGH [None]
  - DYSPNOEA [None]
  - MALAISE [None]
  - SUICIDE ATTEMPT [None]
  - NORMAL NEWBORN [None]
  - PLEURAL EFFUSION [None]
  - NAUSEA [None]
  - PYREXIA [None]
  - MATERNAL EXPOSURE DURING PREGNANCY [None]
  - DELIVERY [None]
